FAERS Safety Report 10156770 (Version 1)
Quarter: 2014Q2

REPORT INFORMATION
  Report Type: Spontaneous
  Country: US (occurrence: None)
  Receive Date: 20140506
  Receipt Date: 20140506
  Transmission Date: 20141212
  Serious: No
  Sender: FDA-Public Use
  Company Number: None

PATIENT
  Age: 57 Year
  Sex: Male
  Weight: 86.18 kg

DRUGS (10)
  1. RABEPRAZOLE [Suspect]
     Indication: HIATUS HERNIA
     Dates: start: 20090609, end: 20100401
  2. RABEPRAZOLE [Suspect]
     Indication: GASTROOESOPHAGEAL REFLUX DISEASE
     Dates: start: 20090609, end: 20100401
  3. DEXLANSOPRAZOLE [Concomitant]
  4. LANSOPRAZOLE [Concomitant]
  5. PANTOPRAZOLE [Concomitant]
  6. OMEPRAZOLE [Concomitant]
  7. ESOMEPRAZOLE [Concomitant]
  8. CIMETIDINE [Concomitant]
  9. RANITIDINE [Concomitant]
  10. RABEPRAZOLE [Concomitant]

REACTIONS (2)
  - Product substitution issue [None]
  - Therapeutic response decreased [None]
